FAERS Safety Report 18290925 (Version 3)
Quarter: 2020Q4

REPORT INFORMATION
  Report Type: Spontaneous
  Country: FR (occurrence: FR)
  Receive Date: 20200921
  Receipt Date: 20201109
  Transmission Date: 20210113
  Serious: Yes (Other)
  Sender: FDA-Public Use
  Company Number: FR-MYLANLABS-2020M1079719

PATIENT
  Age: 74 Year
  Sex: Female
  Weight: 63 kg

DRUGS (1)
  1. ZOLEDRONIC ACID [Suspect]
     Active Substance: ZOLEDRONIC ACID
     Indication: OSTEOPOROSIS
     Dosage: UNK (5ML100ML)
     Route: 065
     Dates: start: 20190719

REACTIONS (19)
  - Tooth disorder [Not Recovered/Not Resolved]
  - Gait disturbance [Unknown]
  - Gingivitis [Unknown]
  - Joint swelling [Unknown]
  - Osteonecrosis of jaw [Unknown]
  - Pain in jaw [Not Recovered/Not Resolved]
  - Arthralgia [Unknown]
  - Sciatica [Unknown]
  - Limb discomfort [Not Recovered/Not Resolved]
  - Abdominal pain [Unknown]
  - Pain [Unknown]
  - Finger deformity [Unknown]
  - Peripheral coldness [Unknown]
  - Diarrhoea [Not Recovered/Not Resolved]
  - Gingival swelling [Unknown]
  - Tooth injury [Unknown]
  - Mastication disorder [Unknown]
  - Limb injury [Unknown]
  - Fatigue [Unknown]

NARRATIVE: CASE EVENT DATE: 2020
